FAERS Safety Report 9206153 (Version 2)
Quarter: 2013Q2

REPORT INFORMATION
  Report Type: Spontaneous
  Country: US (occurrence: None)
  Receive Date: 20120731
  Receipt Date: 20121130
  Transmission Date: 20140414
  Serious: Yes (Other)
  Sender: FDA-Public Use
  Company Number: US201205010241

PATIENT
  Sex: Female

DRUGS (1)
  1. BYETTA [Suspect]
     Route: 058

REACTIONS (1)
  - Renal failure [None]
